FAERS Safety Report 7884416-7 (Version None)
Quarter: 2011Q4

REPORT INFORMATION
  Report Type: 
  Country: None (occurrence: None)
  Receive Date: 20111102
  Receipt Date: 20110804
  Transmission Date: 20120403
  Serious: No
  Sender: FDA-Public Use
  Company Number: US-ASTRAZENECA-2011SE40084

PATIENT
  Age: 73 Year
  Sex: Female

DRUGS (2)
  1. VANDETANIB [Suspect]
     Indication: THYROID CANCER
     Route: 048
     Dates: start: 20110620
  2. VANDETANIB [Suspect]
     Route: 048

REACTIONS (3)
  - STOMATITIS [None]
  - ERYTHEMA [None]
  - MALAISE [None]
